FAERS Safety Report 14182624 (Version 1)
Quarter: 2017Q4

REPORT INFORMATION
  Report Type: Spontaneous
  Country: CZ (occurrence: CZ)
  Receive Date: 20171113
  Receipt Date: 20171113
  Transmission Date: 20180321
  Serious: Yes (Other)
  Sender: FDA-Public Use
  Company Number: CZ-B.I. PHARMACEUTICALS,INC./RIDGEFIELD-2017-BI-060459

PATIENT
  Age: 13 Year
  Sex: Female

DRUGS (1)
  1. CATAPRESAN [Suspect]
     Active Substance: CLONIDINE
     Indication: SOMATOTROPIN STIMULATION TEST
     Route: 065
     Dates: start: 20171006, end: 20171006

REACTIONS (5)
  - Tonic convulsion [Recovered/Resolved]
  - Muscle contractions involuntary [Recovered/Resolved]
  - Altered state of consciousness [Recovered/Resolved]
  - Urinary incontinence [Recovered/Resolved]
  - Muscle twitching [Recovered/Resolved]

NARRATIVE: CASE EVENT DATE: 20171006
